FAERS Safety Report 20616793 (Version 35)
Quarter: 2025Q2

REPORT INFORMATION
  Report Type: Spontaneous
  Country: US (occurrence: US)
  Receive Date: 20220321
  Receipt Date: 20250626
  Transmission Date: 20250717
  Serious: Yes (Other)
  Sender: PFIZER
  Company Number: US-PFIZER INC-202200359979

PATIENT
  Age: 67 Year
  Sex: Female
  Weight: 81.633 kg

DRUGS (7)
  1. IBRANCE [Suspect]
     Active Substance: PALBOCICLIB
     Indication: Breast cancer metastatic
     Route: 048
     Dates: start: 2021
  2. IBRANCE [Suspect]
     Active Substance: PALBOCICLIB
     Dates: start: 20210902
  3. IBRANCE [Suspect]
     Active Substance: PALBOCICLIB
     Dates: start: 202201
  4. IBRANCE [Suspect]
     Active Substance: PALBOCICLIB
  5. IBRANCE [Suspect]
     Active Substance: PALBOCICLIB
     Dates: start: 20230123
  6. IBRANCE [Suspect]
     Active Substance: PALBOCICLIB
     Route: 048
     Dates: start: 20241104
  7. LETROZOLE [Concomitant]
     Active Substance: LETROZOLE
     Route: 048
     Dates: start: 202008

REACTIONS (26)
  - Suicidal ideation [Unknown]
  - Metastases to lung [Recovering/Resolving]
  - Oxygen saturation decreased [Unknown]
  - Therapeutic response unexpected [Unknown]
  - Hair growth abnormal [Unknown]
  - Alopecia [Unknown]
  - Madarosis [Recovering/Resolving]
  - Anxiety [Unknown]
  - Heart rate decreased [Unknown]
  - Infection [Unknown]
  - Malaise [Unknown]
  - Full blood count decreased [Unknown]
  - Hypersensitivity [Unknown]
  - Illness [Not Recovered/Not Resolved]
  - Brain fog [Unknown]
  - Dyspnoea [Unknown]
  - Insomnia [Unknown]
  - Eating disorder [Unknown]
  - Eye swelling [Recovering/Resolving]
  - Arthropod bite [Recovering/Resolving]
  - Disturbance in attention [Unknown]
  - Impaired driving ability [Unknown]
  - Gait disturbance [Unknown]
  - Hair colour changes [Unknown]
  - Tremor [Not Recovered/Not Resolved]
  - Nasopharyngitis [Unknown]
